FAERS Safety Report 13043629 (Version 1)
Quarter: 2016Q4

REPORT INFORMATION
  Report Type: Spontaneous
  Country: US (occurrence: US)
  Receive Date: 20161219
  Receipt Date: 20161219
  Transmission Date: 20170207
  Serious: Yes (Hospitalization)
  Sender: FDA-Public Use
  Company Number: None

PATIENT
  Age: 50 Year
  Sex: Male
  Weight: 99.4 kg

DRUGS (15)
  1. HYDRALAZINE (APRESOLINE) [Concomitant]
  2. POTASSIUM CHLORIDE SA [Concomitant]
  3. SOFOSBUVIR/VELPATASVIR 400-100MG GILEAD [Suspect]
     Active Substance: SOFOSBUVIR\VELPATASVIR
     Route: 048
     Dates: start: 20160928
  4. COLCHICINE. [Concomitant]
     Active Substance: COLCHICINE
  5. CARVEDILOL (COREG) [Concomitant]
  6. FOLIC ACID (FOLVITE) [Concomitant]
  7. LANOXIN [Concomitant]
     Active Substance: DIGOXIN
  8. LEVOTHYROXINE (SYNTHROID, LEVOTHROID) [Concomitant]
  9. XANAX [Concomitant]
     Active Substance: ALPRAZOLAM
  10. ALLOPURINOL (ZYLOPRIM) [Concomitant]
  11. FEBUXOSTAT (ULORIC) [Concomitant]
  12. HYDROXYUREA (HYDREA) [Concomitant]
  13. ISOSORBIDE DINITRATE (ISORDIL) [Concomitant]
  14. TORSEMIDE (DEMADEX) [Concomitant]
  15. COUMADIN [Concomitant]
     Active Substance: WARFARIN SODIUM

REACTIONS (4)
  - Cardiac failure congestive [None]
  - Pancreatitis chronic [None]
  - Lipase increased [None]
  - Alcohol abuse [None]

NARRATIVE: CASE EVENT DATE: 20161107
